FAERS Safety Report 25996562 (Version 1)
Quarter: 2025Q4

REPORT INFORMATION
  Report Type: Spontaneous
  Country: US (occurrence: None)
  Receive Date: 20251104
  Receipt Date: 20251104
  Transmission Date: 20260117
  Serious: Yes (Other)
  Sender: FDA-CTU
  Company Number: None

PATIENT
  Sex: Female

DRUGS (11)
  1. KISQALI [Suspect]
     Active Substance: RIBOCICLIB SUCCINATE
     Indication: Breast cancer
     Dosage: TAKE 2 TABLETS BY MOUTH EVERY DAY FOR 3 WEEKS THEN FOLLOWED BY 1 WEEK OFF
     Route: 048
     Dates: start: 20250924
  2. ALBUTEROL AER HFA [Concomitant]
  3. COLACE CAP 100MG [Concomitant]
  4. DEXAMETHASONE [Concomitant]
     Active Substance: DEXAMETHASONE
  5. IBUPROFEN [Concomitant]
     Active Substance: IBUPROFEN
  6. LETROZOLE [Concomitant]
     Active Substance: LETROZOLE
  7. MULTIVITAMIN TAB ADULTS [Concomitant]
  8. NYSTATIN SUS 100000 [Concomitant]
  9. ONDANSETRON [Concomitant]
     Active Substance: ONDANSETRON
  10. OXYCODONE CAP5MG [Concomitant]
  11. PANTOPRAZOLE TAB 40MG [Concomitant]

REACTIONS (4)
  - Fatigue [None]
  - Surgery [None]
  - White blood cell count decreased [None]
  - Therapy interrupted [None]
